FAERS Safety Report 12525821 (Version 3)
Quarter: 2017Q1

REPORT INFORMATION
  Report Type: Report from Study
  Country: JP (occurrence: JP)
  Receive Date: 20160705
  Receipt Date: 20170116
  Transmission Date: 20170428
  Serious: Yes (Death)
  Sender: FDA-Public Use
  Company Number: JP-ASTRAZENECA-2016SE72090

PATIENT
  Age: 82 Year
  Sex: Female
  Weight: 37 kg

DRUGS (11)
  1. RINDERON V [Concomitant]
     Active Substance: BETAMETHASONE VALERATE
     Indication: BRAIN OEDEMA
     Dosage: NUMBER OF SEPARATE DOSAGES UNKNOWN1.0MG UNKNOWN
     Route: 048
     Dates: end: 20160623
  2. OPDIVO [Suspect]
     Active Substance: NIVOLUMAB
     Indication: NON-SMALL CELL LUNG CANCER
     Dosage: 3 MG/KG
     Route: 041
     Dates: start: 20160412, end: 20160511
  3. NU-LOTAN [Concomitant]
     Active Substance: LOSARTAN POTASSIUM
     Indication: HYPERTENSION
     Dosage: NUMBER OF SEPARATE DOSAGES UNKNOWN100.0MG UNKNOWN
     Route: 048
     Dates: end: 20160623
  4. TAKECAB [Concomitant]
     Active Substance: VONOPRAZAN FUMURATE
     Indication: GASTRIC ULCER
     Dosage: NUMBER OF SEPARATE DOSAGES UNKNOWN10.0MG UNKNOWN
     Route: 048
     Dates: end: 20160623
  5. BASEN [Concomitant]
     Active Substance: VOGLIBOSE
     Indication: TYPE 2 DIABETES MELLITUS
     Dosage: NUMBER OF SEPARATE DOSAGES UNKNOWN0.6MG UNKNOWN
     Route: 048
     Dates: end: 20160623
  6. NICORANDIL [Concomitant]
     Active Substance: NICORANDIL
     Indication: ANGINA PECTORIS
     Dosage: NUMBER OF SEPARATE DOSAGES UNKNOWN10.0MG UNKNOWN
     Route: 048
     Dates: end: 20160623
  7. HOCHUEKKITO [Concomitant]
     Active Substance: HERBALS
     Indication: GENERAL PHYSICAL HEALTH DETERIORATION
     Dosage: NUMBER OF SEPARATE DOSAGES UNKNOWN5.0G UNKNOWN
     Route: 048
     Dates: end: 20160623
  8. HOKUNALIN:TAPE [Concomitant]
     Active Substance: TULOBUTEROL
     Indication: CHRONIC OBSTRUCTIVE PULMONARY DISEASE
     Dosage: NUMBER OF SEPARATE DOSAGES UNKNOWN2.0MG UNKNOWN
     Route: 062
     Dates: end: 20160625
  9. HYPEN [Concomitant]
     Active Substance: ETODOLAC
     Indication: BACK PAIN
     Dosage: NUMBER OF SEPARATE DOSAGES UNKNOWN400.0MG UNKNOWN
     Route: 048
     Dates: end: 20160623
  10. TAGRISSO [Suspect]
     Active Substance: OSIMERTINIB
     Indication: NON-SMALL CELL LUNG CANCER
     Route: 048
     Dates: start: 20160609, end: 20160619
  11. LOXONIN [Concomitant]
     Active Substance: LOXOPROFEN SODIUM
     Indication: BACK PAIN
     Dosage: NUMBER OF SEPARATE DOSAGES UNKNOWN300.0MG UNKNOWN
     Route: 062
     Dates: end: 20160625

REACTIONS (1)
  - Interstitial lung disease [Fatal]

NARRATIVE: CASE EVENT DATE: 20160620
